FAERS Safety Report 6824127-X (Version None)
Quarter: 2010Q3

REPORT INFORMATION
  Report Type: 
  Country: None (occurrence: None)
  Receive Date: 20100708
  Receipt Date: 20061002
  Transmission Date: 20110219
  Serious: No
  Sender: FDA-Public Use
  Company Number: US-PFIZER INC-2006121048

PATIENT
  Sex: Female
  Weight: 70.31 kg

DRUGS (4)
  1. CHANTIX [Suspect]
     Indication: SMOKING CESSATION THERAPY
     Dates: start: 20061001
  2. VALPROATE SODIUM [Concomitant]
  3. ZIPRASIDONE HCL [Concomitant]
  4. LORAZEPAM [Concomitant]

REACTIONS (4)
  - ABDOMINAL PAIN UPPER [None]
  - CHEST PAIN [None]
  - GASTROINTESTINAL DISORDER [None]
  - NAUSEA [None]
